FAERS Safety Report 18546582 (Version 3)
Quarter: 2020Q4

REPORT INFORMATION
  Report Type: Spontaneous
  Country: US (occurrence: US)
  Receive Date: 20201125
  Receipt Date: 20201214
  Transmission Date: 20210114
  Serious: No
  Sender: FDA-Public Use
  Company Number: US-CELGENEUS-USA-20201104815

PATIENT
  Sex: Male
  Weight: 75.82 kg

DRUGS (1)
  1. REVLIMID [Suspect]
     Active Substance: LENALIDOMIDE
     Indication: PLASMA CELL MYELOMA
     Dosage: 20 MILLIGRAM
     Route: 048
     Dates: start: 202010, end: 202012

REACTIONS (9)
  - Swelling face [Not Recovered/Not Resolved]
  - Eye swelling [Unknown]
  - Rash [Unknown]
  - Insomnia [Not Recovered/Not Resolved]
  - Abscess oral [Unknown]
  - Rash macular [Unknown]
  - Night sweats [Not Recovered/Not Resolved]
  - Tremor [Not Recovered/Not Resolved]
  - Tooth extraction [Unknown]

NARRATIVE: CASE EVENT DATE: 2020
